FAERS Safety Report 24835416 (Version 1)
Quarter: 2025Q1

REPORT INFORMATION
  Report Type: Spontaneous
  Country: JP (occurrence: JP)
  Receive Date: 20250113
  Receipt Date: 20250113
  Transmission Date: 20250409
  Serious: Yes (Other)
  Sender: AMGEN
  Company Number: JP-TAKEDA-2025TJP000030

PATIENT
  Age: 6 Decade

DRUGS (2)
  1. VECTIBIX [Suspect]
     Active Substance: PANITUMUMAB
     Indication: Product used for unknown indication
     Route: 065
     Dates: start: 202411
  2. VECTIBIX [Suspect]
     Active Substance: PANITUMUMAB
     Route: 065

REACTIONS (1)
  - Myelosuppression [Recovering/Resolving]
